FAERS Safety Report 19059370 (Version 2)
Quarter: 2021Q2

REPORT INFORMATION
  Report Type: Spontaneous
  Country: EE (occurrence: EE)
  Receive Date: 20210326
  Receipt Date: 20210415
  Transmission Date: 20210717
  Serious: Yes (Hospitalization)
  Sender: FDA-Public Use
  Company Number: EE-ROCHE-2798472

PATIENT
  Age: 53 Year
  Sex: Male

DRUGS (5)
  1. INFLIXIMAB [Suspect]
     Active Substance: INFLIXIMAB
     Indication: PRODUCT USED FOR UNKNOWN INDICATION
     Route: 065
  2. TRAMADOL. [Concomitant]
     Active Substance: TRAMADOL
  3. PANTOPRAZOLE [Concomitant]
     Active Substance: PANTOPRAZOLE
  4. MEDROL [Concomitant]
     Active Substance: METHYLPREDNISOLONE
     Dosage: 4 TO 8 MG
  5. ROACTEMRA [Suspect]
     Active Substance: TOCILIZUMAB
     Indication: RHEUMATOID ARTHRITIS
     Route: 058
     Dates: start: 20150504

REACTIONS (1)
  - Arthritis bacterial [Not Recovered/Not Resolved]

NARRATIVE: CASE EVENT DATE: 20200204
